FAERS Safety Report 8409254-8 (Version None)
Quarter: 2012Q2

REPORT INFORMATION
  Report Type: 
  Country: None (occurrence: None)
  Receive Date: 20120604
  Receipt Date: 20120515
  Transmission Date: 20120825
  Serious: No
  Sender: FDA-Public Use
  Company Number: US-ASTRAZENECA-2012SE31254

PATIENT
  Age: 44 Year
  Sex: Female
  Weight: 44 kg

DRUGS (4)
  1. TOPROL-XL [Suspect]
     Indication: HYPERTENSION
     Route: 048
     Dates: start: 20120401
  2. CLARITIN [Concomitant]
     Indication: RASH
  3. VITAMIN D [Concomitant]
  4. TOPROL-XL [Suspect]
     Route: 048
     Dates: start: 20120510

REACTIONS (7)
  - DIZZINESS [None]
  - FEELING ABNORMAL [None]
  - HEAD DISCOMFORT [None]
  - INCORRECT DOSE ADMINISTERED [None]
  - STRESS [None]
  - SOMNOLENCE [None]
  - FATIGUE [None]
